FAERS Safety Report 5349527-9 (Version None)
Quarter: 2007Q2

REPORT INFORMATION
  Report Type: 
  Country: None (occurrence: None)
  Receive Date: 20070510
  Receipt Date: 20060818
  Transmission Date: 20071010
  Serious: Yes (Other)
  Sender: FDA-Public Use
  Company Number: PHEH2006US10605

PATIENT
  Sex: Male

DRUGS (1)
  1. HYDRALAZINE HCL [Suspect]

REACTIONS (1)
  - HYPOTENSION [None]
